FAERS Safety Report 10330648 (Version 3)
Quarter: 2014Q4

REPORT INFORMATION
  Report Type: Spontaneous
  Country: FR (occurrence: None)
  Receive Date: 20140717
  Receipt Date: 20141027
  Transmission Date: 20150528
  Serious: Yes (Other)
  Sender: FDA-Public Use
  Company Number: AXC-2014-000411

PATIENT
  Age: 52 Year
  Sex: Male
  Weight: 82 kg

DRUGS (3)
  1. INEXIUM [Suspect]
     Active Substance: ESOMEPRAZOLE
     Indication: HELICOBACTER INFECTION
     Dosage: 40MG, BID, ORAL.
     Dates: start: 20140623, end: 20140627
  2. PYLERA [Suspect]
     Active Substance: BISMUTH SUBCITRATE POTASSIUM\METRONIDAZOLE\TETRACYCLINE HYDROCHLORIDE
     Indication: HELICOBACTER INFECTION
     Dosage: 3 DF,QID,ORAL.
     Route: 048
     Dates: start: 20140623, end: 20140626
  3. NI [Concomitant]
     Active Substance: UNSPECIFIED INGREDIENT

REACTIONS (10)
  - Muscle spasms [None]
  - Somnolence [None]
  - Gait disturbance [None]
  - Paraesthesia [None]
  - Off label use [None]
  - Cerebellar syndrome [None]
  - Vertigo [None]
  - Limb discomfort [None]
  - Fatigue [None]
  - Headache [None]

NARRATIVE: CASE EVENT DATE: 201406
